FAERS Safety Report 9982309 (Version 1)
Quarter: 2014Q1

REPORT INFORMATION
  Report Type: Report from Study
  Country: US (occurrence: US)
  Receive Date: 20140307
  Receipt Date: 20140307
  Transmission Date: 20141002
  Serious: No
  Sender: FDA-Public Use
  Company Number: US-ABBVIE-13P-163-1177304-00

PATIENT
  Age: 72 Year
  Sex: Female

DRUGS (9)
  1. HUMIRA [Suspect]
     Indication: CROHN^S DISEASE
     Dosage: LOADING DOSE
     Dates: start: 20131203, end: 20131203
  2. HUMIRA [Suspect]
  3. LIALDA [Concomitant]
     Indication: CROHN^S DISEASE
  4. PREDNISONE [Concomitant]
     Indication: CROHN^S DISEASE
     Dosage: WILL EVENTUALLY TAPER OFF
  5. LOW THYROID PILL [Concomitant]
     Indication: PRODUCT USED FOR UNKNOWN INDICATION
  6. UNKNOWN MEDICATION [Concomitant]
     Indication: DYSPEPSIA
  7. GENERIC ZOCOR [Concomitant]
     Indication: BLOOD CHOLESTEROL
     Dosage: AT NIGHT
  8. MUSCLE RELAXER [Concomitant]
     Indication: SURGERY
  9. RESTASIS [Concomitant]
     Indication: DRY EYE

REACTIONS (2)
  - Injection site bruising [Recovering/Resolving]
  - Injection site pain [Recovering/Resolving]
